FAERS Safety Report 8226420-5 (Version None)
Quarter: 2012Q1

REPORT INFORMATION
  Report Type: 
  Country: None (occurrence: None)
  Receive Date: 20120321
  Receipt Date: 20120313
  Transmission Date: 20120608
  Serious: Yes (Hospitalization)
  Sender: FDA-Public Use
  Company Number: FR-ASTRAZENECA-2012SE17446

PATIENT
  Age: 78 Year
  Sex: Female
  Weight: 80 kg

DRUGS (13)
  1. SIMVASTATIN [Concomitant]
     Route: 048
  2. FOSAMAX [Concomitant]
     Route: 048
     Dates: start: 20050602, end: 20110224
  3. NITROGLYCERIN [Concomitant]
     Dosage: 5 MG/ 24H
     Route: 062
     Dates: end: 20110212
  4. TRAMADOL HCL [Concomitant]
     Dosage: 37.5 MG/ 325 MG
     Route: 048
     Dates: end: 20110224
  5. ATARAX [Concomitant]
     Route: 048
     Dates: start: 20050602
  6. ATACAND [Suspect]
     Route: 048
     Dates: end: 20110212
  7. FOLIC ACID [Concomitant]
     Route: 048
     Dates: start: 20050602, end: 20110224
  8. CALCIUM CARBONATE [Concomitant]
     Route: 048
     Dates: start: 20050602
  9. DEPAKENE [Concomitant]
     Route: 048
     Dates: start: 20050602, end: 20110224
  10. SPIRONOLACTONE [Suspect]
     Route: 048
     Dates: start: 20050602, end: 20110212
  11. PROPRANOLOL [Concomitant]
     Route: 048
     Dates: start: 20050602
  12. ENDOTELON [Concomitant]
     Route: 048
     Dates: start: 20050602
  13. VASTAREL [Concomitant]
     Route: 048
     Dates: end: 20110212

REACTIONS (3)
  - RENAL FAILURE ACUTE [None]
  - FALL [None]
  - DEHYDRATION [None]
